FAERS Safety Report 6358434-4 (Version None)
Quarter: 2009Q3

REPORT INFORMATION
  Report Type: 
  Country: None (occurrence: None)
  Receive Date: 20090916
  Receipt Date: 20090911
  Transmission Date: 20100115
  Serious: Yes (Other)
  Sender: FDA-Public Use
  Company Number: US-BAYER-200914175BCC

PATIENT
  Sex: Male

DRUGS (1)
  1. BAYER QUICK RELEASE CRYSTALS [Suspect]
     Indication: DRUG USE FOR UNKNOWN INDICATION
     Route: 048

REACTIONS (2)
  - DYSPNOEA [None]
  - SPEECH DISORDER [None]
